FAERS Safety Report 9411704 (Version 1)
Quarter: 2013Q3

REPORT INFORMATION
  Report Type: Spontaneous
  Country: DE (occurrence: DE)
  Receive Date: 20130722
  Receipt Date: 20130722
  Transmission Date: 20140515
  Serious: Yes (Other)
  Sender: FDA-Public Use
  Company Number: DE-JNJFOC-20130709625

PATIENT
  Age: 78 Year
  Sex: Male
  Weight: 74 kg

DRUGS (9)
  1. XARELTO [Suspect]
     Indication: CEREBROVASCULAR ACCIDENT PROPHYLAXIS
     Route: 048
     Dates: start: 20130507, end: 20130527
  2. XARELTO [Suspect]
     Indication: ATRIAL FIBRILLATION
     Route: 048
     Dates: start: 20130507, end: 20130527
  3. BISOPROLOL [Concomitant]
     Route: 065
  4. SERENOA REPENS FRUIT EXTRACT [Concomitant]
     Route: 065
  5. ALLOPURINOL [Concomitant]
     Route: 065
  6. ENALAPRIL COMP [Concomitant]
     Route: 065
  7. FERRO SANOL [Concomitant]
     Route: 065
  8. SPIRONOLACTON [Concomitant]
     Route: 065
  9. TORASEMID [Concomitant]
     Route: 065

REACTIONS (5)
  - Cardiac failure [Recovering/Resolving]
  - Ascites [Recovering/Resolving]
  - Blood creatinine increased [Recovering/Resolving]
  - Creatinine renal clearance decreased [Unknown]
  - Renal function test abnormal [Unknown]
